FAERS Safety Report 10949134 (Version 1)
Quarter: 2015Q1

REPORT INFORMATION
  Report Type: Spontaneous
  Country: JP (occurrence: JP)
  Receive Date: 20150324
  Receipt Date: 20150324
  Transmission Date: 20150721
  Serious: Yes (Hospitalization, Other)
  Sender: FDA-Public Use
  Company Number: JP-ASTELLAS-2007JP005798

PATIENT
  Age: 26 Year
  Sex: Female
  Weight: 42 kg

DRUGS (30)
  1. PROGRAF [Suspect]
     Active Substance: TACROLIMUS\TACROLIMUS ANHYDROUS
     Route: 048
  2. ROHYPNOL [Concomitant]
     Active Substance: FLUNITRAZEPAM
     Indication: PRODUCT USED FOR UNKNOWN INDICATION
     Route: 048
     Dates: start: 20070802
  3. GASMOTIN [Concomitant]
     Active Substance: MOSAPRIDE CITRATE
     Indication: PRODUCT USED FOR UNKNOWN INDICATION
     Route: 048
     Dates: start: 20070228, end: 20070810
  4. PROGRAF [Suspect]
     Active Substance: TACROLIMUS\TACROLIMUS ANHYDROUS
     Dosage: 0.15 MG/KG, UNKNOWN FREQ.
     Route: 048
  5. MEDROL [Concomitant]
     Active Substance: METHYLPREDNISOLONE
     Route: 048
  6. MARZULENE S [Concomitant]
     Active Substance: GLUTAMINE\SODIUM GUALENATE
     Indication: PRODUCT USED FOR UNKNOWN INDICATION
     Dosage: 0.666 MG, THRICE DAILY
     Route: 048
     Dates: start: 20070411
  7. GASTER [Concomitant]
     Active Substance: FAMOTIDINE
     Indication: PRODUCT USED FOR UNKNOWN INDICATION
     Route: 048
     Dates: start: 20070306, end: 20070326
  8. STEROID [Concomitant]
     Active Substance: UNSPECIFIED INGREDIENT
     Indication: TRANSPLANT REJECTION
     Route: 065
  9. PROGRAF [Suspect]
     Active Substance: TACROLIMUS\TACROLIMUS ANHYDROUS
     Indication: IMMUNOSUPPRESSANT DRUG THERAPY
     Dosage: 0.05 MG/KG, UNKNOWN FREQ.
     Route: 065
  10. PROGRAF [Suspect]
     Active Substance: TACROLIMUS\TACROLIMUS ANHYDROUS
     Route: 048
     Dates: start: 20070213
  11. ENTERONON [Concomitant]
     Indication: PRODUCT USED FOR UNKNOWN INDICATION
     Route: 048
     Dates: start: 20070228
  12. DIOVAN [Concomitant]
     Active Substance: VALSARTAN
     Indication: PRODUCT USED FOR UNKNOWN INDICATION
     Route: 048
     Dates: start: 20070323, end: 20070418
  13. ANTI-IL-2 RECEPTOR ANTIBODY [Concomitant]
     Indication: SMALL INTESTINE TRANSPLANT
     Dosage: UNK, UNK
     Route: 065
  14. TAKEPRON [Concomitant]
     Active Substance: LANSOPRAZOLE
     Indication: PRODUCT USED FOR UNKNOWN INDICATION
     Route: 048
     Dates: start: 20070327
  15. RITUXAN [Concomitant]
     Active Substance: RITUXIMAB
     Indication: IMMUNOSUPPRESSANT DRUG THERAPY
     Route: 065
  16. LOPEMIN [Concomitant]
     Active Substance: LOPERAMIDE HYDROCHLORIDE
     Indication: PRODUCT USED FOR UNKNOWN INDICATION
     Route: 048
     Dates: start: 20070306
  17. BAKTAR [Concomitant]
     Active Substance: SULFAMETHOXAZOLE\TRIMETHOPRIM
     Indication: PRODUCT USED FOR UNKNOWN INDICATION
     Dosage: 0.5 G, TWICE DAILY
     Route: 048
     Dates: start: 20070220
  18. DACLIZUMAB [Concomitant]
     Active Substance: DACLIZUMAB
     Indication: PRODUCT USED FOR UNKNOWN INDICATION
     Route: 041
     Dates: start: 20070215, end: 200803
  19. MEDROL [Concomitant]
     Active Substance: METHYLPREDNISOLONE
     Indication: IMMUNOSUPPRESSANT DRUG THERAPY
     Route: 048
     Dates: start: 20070202
  20. STEROID [Concomitant]
     Active Substance: UNSPECIFIED INGREDIENT
     Route: 065
  21. PROGRAF [Suspect]
     Active Substance: TACROLIMUS\TACROLIMUS ANHYDROUS
     Dosage: 0.02 MG/KG, UNKNOWN FREQ.
     Route: 065
  22. PROGRAF [Suspect]
     Active Substance: TACROLIMUS\TACROLIMUS ANHYDROUS
     Dosage: 0.03 MG/KG, UNKNOWN FREQ.
     Route: 065
  23. PROGRAF [Suspect]
     Active Substance: TACROLIMUS\TACROLIMUS ANHYDROUS
     Indication: SMALL INTESTINE TRANSPLANT
     Dosage: 0.15 MG/KG, UNKNOWN FREQ.
     Route: 048
  24. STEROID [Concomitant]
     Active Substance: UNSPECIFIED INGREDIENT
     Route: 065
  25. 03-OKT [Concomitant]
     Indication: TRANSPLANT REJECTION
     Route: 065
  26. PROGRAF [Suspect]
     Active Substance: TACROLIMUS\TACROLIMUS ANHYDROUS
     Dosage: 0.05 MG/KG, UNKNOWN FREQ.
     Route: 065
  27. LAC B [Concomitant]
     Active Substance: BIFIDOBACTERIUM SPP.
     Indication: PRODUCT USED FOR UNKNOWN INDICATION
     Route: 048
     Dates: start: 20070228
  28. PROGRAF [Suspect]
     Active Substance: TACROLIMUS\TACROLIMUS ANHYDROUS
     Dosage: 0.20 MG/KG, UNKNOWN/D
     Route: 048
  29. ZENAPAX [Concomitant]
     Active Substance: DACLIZUMAB
     Indication: IMMUNOSUPPRESSANT DRUG THERAPY
     Route: 041
     Dates: start: 20070215, end: 200803
  30. STEROID [Concomitant]
     Active Substance: UNSPECIFIED INGREDIENT
     Indication: SMALL INTESTINE TRANSPLANT
     Route: 065

REACTIONS (11)
  - Hyperkalaemia [Recovered/Resolved]
  - Reperfusion injury [Recovering/Resolving]
  - Drug ineffective for unapproved indication [Unknown]
  - Alkalosis [Recovered/Resolved]
  - Renal impairment [Not Recovered/Not Resolved]
  - Dehydration [Recovered/Resolved]
  - Transplant rejection [Unknown]
  - Hyperchloraemia [Recovered/Resolved]
  - Device related sepsis [Recovered/Resolved]
  - Metabolic acidosis [Recovered/Resolved]
  - Subcutaneous haematoma [Unknown]

NARRATIVE: CASE EVENT DATE: 20070228
